FAERS Safety Report 5255716-4 (Version None)
Quarter: 2007Q1

REPORT INFORMATION
  Report Type: 
  Country: None (occurrence: None)
  Receive Date: 20070305
  Receipt Date: 20070227
  Transmission Date: 20070707
  Serious: Yes (Hospitalization)
  Sender: FDA-Public Use
  Company Number: SG-MERCK-0611SGP00006

PATIENT
  Age: 67 Year
  Sex: Female

DRUGS (4)
  1. FOSAMAX [Suspect]
     Indication: OSTEOPOROSIS
     Route: 048
     Dates: start: 20001201, end: 20021101
  2. FOSAMAX [Suspect]
     Route: 048
     Dates: start: 20021101, end: 20060601
  3. PREDNISOLONE [Concomitant]
     Indication: SYSTEMIC LUPUS ERYTHEMATOSUS
     Route: 048
     Dates: start: 19890101
  4. ESTRADIOL AND NORETHINDRONE ACETATE [Concomitant]
     Route: 065
     Dates: start: 19980501, end: 20020701

REACTIONS (2)
  - FALL [None]
  - FEMUR FRACTURE [None]
